FAERS Safety Report 23601530 (Version 1)
Quarter: 2024Q1

REPORT INFORMATION
  Report Type: Report from Study
  Country: US (occurrence: US)
  Receive Date: 20240306
  Receipt Date: 20240306
  Transmission Date: 20240410
  Serious: Yes (Other)
  Sender: FDA-Public Use
  Company Number: US-002147023-NVSC2024US044166

PATIENT
  Sex: Female

DRUGS (2)
  1. ENTRESTO [Suspect]
     Active Substance: SACUBITRIL\VALSARTAN
     Indication: Product used for unknown indication
     Dosage: UNK, BID 49/51 (2 TABLETS)
     Route: 048
     Dates: start: 2020
  2. CARVEDILOL [Suspect]
     Active Substance: CARVEDILOL
     Indication: Product used for unknown indication
     Dosage: UNK
     Route: 065

REACTIONS (8)
  - Pericardial effusion [Unknown]
  - Loss of consciousness [Unknown]
  - Condition aggravated [Unknown]
  - Ejection fraction decreased [Unknown]
  - Asthenia [Unknown]
  - Illness [Unknown]
  - Gait disturbance [Unknown]
  - Hypotension [Unknown]
